FAERS Safety Report 25737647 (Version 1)
Quarter: 2025Q3

REPORT INFORMATION
  Report Type: Spontaneous
  Country: GB (occurrence: GB)
  Receive Date: 20250828
  Receipt Date: 20250828
  Transmission Date: 20251021
  Serious: Yes (Other)
  Sender: CELLTRION
  Company Number: None

PATIENT

DRUGS (7)
  1. BEVACIZUMAB [Suspect]
     Active Substance: BEVACIZUMAB
     Indication: Adverse drug reaction
  2. BEVACIZUMAB [Suspect]
     Active Substance: BEVACIZUMAB
     Indication: Colon cancer
  3. DEXAMETHASONE [Concomitant]
     Active Substance: DEXAMETHASONE
  4. ATROPINE [Concomitant]
     Active Substance: ATROPINE
  5. IRINOTECAN [Concomitant]
     Active Substance: IRINOTECAN
  6. ONDANSETRON [Concomitant]
     Active Substance: ONDANSETRON
  7. FLUOROURACIL [Concomitant]
     Active Substance: FLUOROURACIL

REACTIONS (4)
  - Brain fog [Unknown]
  - Influenza like illness [Unknown]
  - Fatigue [Unknown]
  - Intentional product use issue [Unknown]

NARRATIVE: CASE EVENT DATE: 20250818
